FAERS Safety Report 11271864 (Version 2)
Quarter: 2015Q4

REPORT INFORMATION
  Report Type: Spontaneous
  Country: US (occurrence: US)
  Receive Date: 20150715
  Receipt Date: 20151116
  Transmission Date: 20160304
  Serious: Yes (Death, Other)
  Sender: FDA-Public Use
  Company Number: US-009507513-84030157

PATIENT
  Age: 37 Year
  Sex: Male

DRUGS (1)
  1. ANTIVENIN [Suspect]
     Active Substance: BLACK WIDOW SPIDER (LATRODECTUS MACTANS) IMMUNE GLOBULIN ANTIVENIN (EQUINE)\SERUM, HORSE\WATER
     Indication: PROPHYLAXIS
     Dosage: UNK

REACTIONS (3)
  - Anaphylactic reaction [Fatal]
  - Bronchospasm [Fatal]
  - Respiratory arrest [Fatal]
